FAERS Safety Report 18559554 (Version 2)
Quarter: 2020Q4

REPORT INFORMATION
  Report Type: Spontaneous
  Country: CN (occurrence: CN)
  Receive Date: 20201130
  Receipt Date: 20201203
  Transmission Date: 20210114
  Serious: Yes (Hospitalization, Other)
  Sender: FDA-Public Use
  Company Number: CN-PFIZER INC-2020461861

PATIENT
  Age: 35 Year
  Sex: Male

DRUGS (2)
  1. THIAMPHENICOL [Suspect]
     Active Substance: THIAMPHENICOL
     Indication: URETHRITIS
     Dosage: UNK
     Route: 048
  2. FLUCONAZOLE. [Suspect]
     Active Substance: FLUCONAZOLE
     Indication: URETHRITIS
     Dosage: UNK
     Route: 048

REACTIONS (3)
  - Hypokalaemia [Recovered/Resolved]
  - Off label use [Unknown]
  - Blood corticotrophin decreased [Recovered/Resolved]
